FAERS Safety Report 11265646 (Version 1)
Quarter: 2015Q3

REPORT INFORMATION
  Report Type: Spontaneous
  Country: US (occurrence: US)
  Receive Date: 20150713
  Receipt Date: 20150713
  Transmission Date: 20151125
  Serious: No
  Sender: FDA-Public Use
  Company Number: US-TAKEDA-2012-07384

PATIENT
  Sex: Male
  Weight: 72.11 kg

DRUGS (6)
  1. VELCADE [Suspect]
     Active Substance: BORTEZOMIB
     Dosage: 2.39 MG, CYCLIC
     Route: 058
     Dates: start: 20121016, end: 20121016
  2. DEXAMETHASONE. [Suspect]
     Active Substance: DEXAMETHASONE
     Indication: PRODUCT USED FOR UNKNOWN INDICATION
     Dosage: 20 MG, UNK
  3. VELCADE [Suspect]
     Active Substance: BORTEZOMIB
     Dosage: 2.43 MG, CYCLIC
     Route: 058
     Dates: start: 20121012, end: 20121012
  4. ZOLEDRONIC ACID [Concomitant]
     Active Substance: ZOLEDRONIC ACID
     Indication: PRODUCT USED FOR UNKNOWN INDICATION
     Dosage: 4 MG, UNK
  5. VELCADE [Suspect]
     Active Substance: BORTEZOMIB
     Indication: PLASMA CELL MYELOMA
     Dosage: 2.42 MG, CYCLIC
     Route: 058
     Dates: start: 20121009, end: 20121009
  6. VELCADE [Suspect]
     Active Substance: BORTEZOMIB
     Dosage: 2.42 MG, CYCLIC
     Route: 058
     Dates: start: 20121019, end: 20121019

REACTIONS (4)
  - Blood pressure increased [Unknown]
  - Body temperature decreased [Unknown]
  - Bradycardia [Unknown]
  - Weight fluctuation [Unknown]
